FAERS Safety Report 23778662 (Version 2)
Quarter: 2024Q2

REPORT INFORMATION
  Report Type: Other
  Country: MX (occurrence: MX)
  Receive Date: 20240424
  Receipt Date: 20240502
  Transmission Date: 20240716
  Serious: Yes (Hospitalization, Other)
  Sender: FDA-Public Use
  Company Number: MX-002147023-NVSC2024MX085538

PATIENT
  Age: 54 Year
  Sex: Female
  Weight: 80.9 kg

DRUGS (2)
  1. XOLAIR [Suspect]
     Active Substance: OMALIZUMAB
     Indication: Asthma
     Dosage: 1 DOSAGE FORM, BIW (EVERY 15 DAYS)
     Route: 058
     Dates: start: 20210420
  2. XOLAIR [Suspect]
     Active Substance: OMALIZUMAB
     Indication: Urticaria chronic

REACTIONS (9)
  - Anaphylactic reaction [Recovered/Resolved]
  - Hyperthermia [Unknown]
  - Nausea [Unknown]
  - Anxiety [Unknown]
  - Chest discomfort [Unknown]
  - Oxygen saturation decreased [Unknown]
  - Hypertension [Unknown]
  - Tachycardia [Unknown]
  - Tachypnoea [Unknown]

NARRATIVE: CASE EVENT DATE: 20240418
